FAERS Safety Report 9215790 (Version 2)
Quarter: 2013Q3

REPORT INFORMATION
  Report Type: Spontaneous
  Country: US (occurrence: US)
  Receive Date: 20130408
  Receipt Date: 20130902
  Transmission Date: 20140515
  Serious: No
  Sender: FDA-Public Use
  Company Number: US-009507513-2012SP023331

PATIENT
  Age: 55 Year
  Sex: Male
  Weight: 89.1 kg

DRUGS (3)
  1. VICTRELIS [Suspect]
     Indication: HEPATITIS C
     Dosage: 800 MG (4CAPSULES), TID, WITH FOOD
     Route: 048
     Dates: start: 20111013
  2. REBETOL [Suspect]
     Indication: HEPATITIS C
     Dosage: 1200 MG (6 CAPSULES), QD
     Route: 048
     Dates: start: 20111013
  3. REBETOL [Suspect]
     Indication: VIRAL INFECTION
     Dosage: 1000MG (5 CAPSULES), QOD
     Route: 048

REACTIONS (3)
  - Vomiting [Unknown]
  - Nausea [Unknown]
  - Dysgeusia [Unknown]
